FAERS Safety Report 7522389-7 (Version None)
Quarter: 2011Q2

REPORT INFORMATION
  Report Type: 
  Country: None (occurrence: None)
  Receive Date: 20110603
  Receipt Date: 20110520
  Transmission Date: 20111010
  Serious: Yes (Hospitalization, Other)
  Sender: FDA-Public Use
  Company Number: US-ELI_LILLY_AND_COMPANY-US201104002264

PATIENT
  Sex: Female

DRUGS (11)
  1. VISTARIL [Concomitant]
     Dosage: UNK, PRN
  2. CYMBALTA [Suspect]
     Dosage: 60 MG, QD
     Route: 048
     Dates: start: 20110201, end: 20110411
  3. RESTORIL [Concomitant]
  4. MORPHINE [Concomitant]
     Dosage: 1 MG, PRN
  5. SANDOSTATIN [Concomitant]
  6. XANAX                                   /USA/ [Concomitant]
  7. FLONASE [Concomitant]
  8. COUMADIN [Concomitant]
  9. PHENERGAN HCL [Concomitant]
     Dosage: UNK, PRN
  10. CYMBALTA [Suspect]
     Indication: MAJOR DEPRESSION
     Dosage: UNK, UNKNOWN
     Route: 048
     Dates: start: 20101104, end: 20110201
  11. DURAGESIC-100 [Concomitant]
     Route: 062

REACTIONS (3)
  - CARCINOID SYNDROME [None]
  - MALAISE [None]
  - PRODUCT COUNTERFEIT [None]
